FAERS Safety Report 16328383 (Version 1)
Quarter: 2019Q2

REPORT INFORMATION
  Report Type: Spontaneous
  Country: PL (occurrence: PL)
  Receive Date: 20190518
  Receipt Date: 20190518
  Transmission Date: 20190711
  Serious: Yes (Life-Threatening, Hospitalization)
  Sender: FDA-Public Use
  Company Number: PL-ACCORD-127880

PATIENT
  Age: 72 Year
  Sex: Female
  Weight: 55 kg

DRUGS (2)
  1. FLUOROURACIL. [Suspect]
     Active Substance: FLUOROURACIL
     Indication: COLON CANCER
     Dosage: ALSO RECEIVED 930 MG
     Route: 042
     Dates: start: 20160810, end: 20160811
  2. IRINOTECAN [Suspect]
     Active Substance: IRINOTECAN
     Indication: COLON CANCER
     Route: 042
     Dates: start: 20160810, end: 20160810

REACTIONS (1)
  - Febrile neutropenia [Recovered/Resolved]

NARRATIVE: CASE EVENT DATE: 20160825
